FAERS Safety Report 7528074-X (Version None)
Quarter: 2011Q2

REPORT INFORMATION
  Report Type: 
  Country: None (occurrence: None)
  Receive Date: 20110607
  Receipt Date: 20101216
  Transmission Date: 20111010
  Serious: Yes (Hospitalization)
  Sender: FDA-Public Use
  Company Number: US-BAYER-201037681NA

PATIENT
  Age: 35 Year
  Sex: Female

DRUGS (19)
  1. DICYCLOMINE [Concomitant]
  2. ZOMIG [Concomitant]
  3. IRON SUPPLEMENT [Concomitant]
  4. INNNOPRAN XL [Concomitant]
     Dosage: 80 MG, UNK
  5. YAZ [Suspect]
     Indication: CONTRACEPTION
  6. HYDROCODONE BITARTRATE AND ACETAMINOPHEN [Concomitant]
     Indication: PAIN
     Dosage: 7.5/500
  7. YAZ [Suspect]
     Indication: ACNE
     Dosage: UNK
  8. YASMIN [Suspect]
     Indication: ACNE
     Dosage: UNK
     Dates: start: 20030101, end: 20070101
  9. METOPROLOL SUCCINATE [Concomitant]
  10. LEVOTHYROXINE SODIUM [Concomitant]
     Indication: THYROID DISORDER
  11. CLONAZEPAM [Concomitant]
  12. ALPRAZOLAM [Concomitant]
     Indication: ANXIETY
     Dosage: 1 MG, UNK
  13. ALBUTEROL SULFATE AUTOHALER [Concomitant]
  14. YASMIN [Suspect]
     Indication: PREMENSTRUAL SYNDROME
  15. YASMIN [Suspect]
     Indication: CONTRACEPTION
  16. NEXIUM [Concomitant]
     Dosage: UNK
     Dates: end: 20050101
  17. NEXIUM [Concomitant]
  18. YAZ [Suspect]
     Indication: PREMENSTRUAL SYNDROME
  19. XOPENEX [Concomitant]

REACTIONS (3)
  - BILIARY DYSKINESIA [None]
  - CHOLECYSTITIS CHRONIC [None]
  - GALLBLADDER DISORDER [None]
